FAERS Safety Report 21752781 (Version 1)
Quarter: 2022Q4

REPORT INFORMATION
  Report Type: Spontaneous
  Country: US (occurrence: None)
  Receive Date: 20221219
  Receipt Date: 20221219
  Transmission Date: 20230113
  Serious: Yes (Hospitalization)
  Sender: FDA-Public Use
  Company Number: None

PATIENT
  Age: 88 Year
  Sex: Female

DRUGS (1)
  1. IBRANCE [Suspect]
     Active Substance: PALBOCICLIB
     Indication: Breast cancer
     Dosage: FREQUENCY : DAILY;?
     Route: 048
     Dates: start: 202209

REACTIONS (6)
  - Nausea [None]
  - Vomiting [None]
  - Pneumonia [None]
  - Drug ineffective [None]
  - Blood pressure abnormal [None]
  - Blood glucose decreased [None]

NARRATIVE: CASE EVENT DATE: 20221213
